FAERS Safety Report 8584987-1 (Version None)
Quarter: 2012Q3

REPORT INFORMATION
  Report Type: 
  Country: None (occurrence: None)
  Receive Date: 20120810
  Receipt Date: 20120807
  Transmission Date: 20120928
  Serious: Yes (Other)
  Sender: FDA-Public Use
  Company Number: US-PFIZER INC-2012193309

PATIENT
  Age: 50 Year
  Sex: Male
  Weight: 102 kg

DRUGS (2)
  1. SOTALOL [Concomitant]
     Indication: BLOOD PRESSURE ABNORMAL
     Dosage: 80 MG, 2X/DAY
  2. LIPITOR [Suspect]
     Indication: BLOOD CHOLESTEROL INCREASED
     Dosage: 40 MG, DAILY

REACTIONS (3)
  - CONVULSION [None]
  - DIABETES MELLITUS [None]
  - BRAIN OPERATION [None]
